FAERS Safety Report 8492415-X (Version None)
Quarter: 2012Q2

REPORT INFORMATION
  Report Type: 
  Country: None (occurrence: None)
  Receive Date: 20120621
  Receipt Date: 20120607
  Transmission Date: 20120825
  Serious: Yes (Hospitalization)
  Sender: FDA-Public Use
  Company Number: AEGBR201200262

PATIENT
  Age: 66 Year
  Sex: Male

DRUGS (6)
  1. FLEBOGAMMA [Suspect]
  2. BECONASE SPRAY (NO PREF. NAME) [Concomitant]
  3. CIPROFLOXACIN [Concomitant]
  4. CODEINE AND PARACETAMOL [Concomitant]
  5. FLEBOGAMMA [Suspect]
     Indication: IMMUNODEFICIENCY COMMON VARIABLE
     Dosage: 15 GM;SOL_INF;IV;QOW, 15 GM;SOL_INF;IV;QOW
     Route: 042
     Dates: start: 19980501, end: 20120507
  6. FLEBOGAMMA [Suspect]
     Indication: IMMUNODEFICIENCY COMMON VARIABLE
     Dosage: 15 GM;SOL_INF;IV;QOW, 15 GM;SOL_INF;IV;QOW
     Route: 042
     Dates: start: 20120409, end: 20120507

REACTIONS (1)
  - PANCREATITIS ACUTE [None]
